FAERS Safety Report 5453613-2 (Version None)
Quarter: 2007Q3

REPORT INFORMATION
  Report Type: 
  Country: None (occurrence: None)
  Receive Date: 20070917
  Receipt Date: 20070910
  Transmission Date: 20080115
  Serious: Yes (Other)
  Sender: FDA-Public Use
  Company Number: PHBS2007ES14940

PATIENT
  Age: 60 Year
  Sex: Male

DRUGS (7)
  1. ZOLEDRONIC ACID [Suspect]
     Indication: METASTASES TO BONE
     Dosage: 4 MG/EVERY 4 WKS
  2. STRAMUSTINE [Concomitant]
  3. DOCETAXEL [Concomitant]
  4. PREDNISOLONE [Concomitant]
  5. VINORELBINE [Concomitant]
  6. CORTICOSTEROIDS [Concomitant]
  7. ANTINEOPLASTIC AGENTS [Concomitant]

REACTIONS (6)
  - BREATH ODOUR [None]
  - DYSAESTHESIA [None]
  - HYPOAESTHESIA ORAL [None]
  - OSTEONECROSIS [None]
  - PRIMARY SEQUESTRUM [None]
  - SWELLING [None]
